FAERS Safety Report 25659778 (Version 1)
Quarter: 2025Q3

REPORT INFORMATION
  Report Type: Spontaneous
  Country: CN (occurrence: CN)
  Receive Date: 20250808
  Receipt Date: 20250808
  Transmission Date: 20251020
  Serious: Yes (Other)
  Sender: NOVARTIS
  Company Number: CN-002147023-NVSC2025CN123651

PATIENT
  Age: 71 Year
  Sex: Male
  Weight: 48 kg

DRUGS (2)
  1. SACUBITRIL\VALSARTAN [Suspect]
     Active Substance: SACUBITRIL\VALSARTAN
     Indication: Nephropathy
     Dosage: 100 MG, QD
     Route: 048
     Dates: start: 20250728, end: 20250728
  2. SACUBITRIL\VALSARTAN [Suspect]
     Active Substance: SACUBITRIL\VALSARTAN
     Indication: Blood pressure increased

REACTIONS (11)
  - Blood pressure increased [Recovering/Resolving]
  - Syncope [Unknown]
  - Nausea [Recovering/Resolving]
  - Dizziness [Recovering/Resolving]
  - Vomiting [Unknown]
  - Hypotension [Recovering/Resolving]
  - Pyrexia [Unknown]
  - Temperature intolerance [Unknown]
  - Chills [Unknown]
  - Rales [Unknown]
  - Breath sounds abnormal [Unknown]

NARRATIVE: CASE EVENT DATE: 20250728
